FAERS Safety Report 18098650 (Version 1)
Quarter: 2020Q3

REPORT INFORMATION
  Report Type: Spontaneous
  Country: CN (occurrence: CN)
  Receive Date: 20200731
  Receipt Date: 20200731
  Transmission Date: 20201103
  Serious: Yes (Hospitalization)
  Sender: FDA-Public Use
  Company Number: CN-ASTRAZENECA-2020SE94758

PATIENT
  Age: 10772 Day
  Sex: Male
  Weight: 64 kg

DRUGS (3)
  1. NIXINNA [Concomitant]
     Indication: DIABETES MELLITUS
     Route: 048
     Dates: start: 20200701, end: 20200715
  2. FORXIGA [Suspect]
     Active Substance: DAPAGLIFLOZIN
     Indication: DIABETES MELLITUS
     Route: 048
     Dates: start: 20200701, end: 20200715
  3. DAMEIKANG [Concomitant]
     Indication: DIABETES MELLITUS
     Route: 048
     Dates: start: 20200701, end: 20200715

REACTIONS (1)
  - Ketosis [Recovering/Resolving]

NARRATIVE: CASE EVENT DATE: 20200715
